FAERS Safety Report 23235486 (Version 1)
Quarter: 2023Q4

REPORT INFORMATION
  Report Type: Spontaneous
  Country: CN (occurrence: CN)
  Receive Date: 20231128
  Receipt Date: 20231128
  Transmission Date: 20240110
  Serious: Yes (Other)
  Sender: FDA-Public Use
  Company Number: CN-PFIZER INC-PV202300188967

PATIENT
  Age: 76 Year
  Sex: Male

DRUGS (6)
  1. PAXLOVID [Interacting]
     Active Substance: NIRMATRELVIR\RITONAVIR
     Indication: COVID-19 treatment
     Dosage: [NIRMATRELVIR 300 MG]/[RITONAVIR 100 MG]; 2X/DAY
     Route: 048
     Dates: start: 202212, end: 202212
  2. TACROLIMUS [Interacting]
     Active Substance: TACROLIMUS
     Indication: Immunosuppressant drug therapy
     Dosage: FULL-DAY DOSE 5 MG/D, 2X/DAY
     Dates: end: 202212
  3. TACROLIMUS [Interacting]
     Active Substance: TACROLIMUS
     Dosage: RESTARTED 2 DAYS AFTER STOPPING PHENYTOIN SODIUM
     Dates: start: 20221231
  4. MYCOPHENOLATE SODIUM [Concomitant]
     Active Substance: MYCOPHENOLATE SODIUM
     Indication: Immunosuppressant drug therapy
     Dosage: 0.72 G/D, 2X/DAY
     Dates: end: 202212
  5. MYCOPHENOLATE SODIUM [Concomitant]
     Active Substance: MYCOPHENOLATE SODIUM
     Dosage: RESTARTED 2 DAYS AFTER STOPPING PHENYTOIN SODIUM
     Dates: start: 20221231
  6. METHYLPREDNISOLONE [Concomitant]
     Active Substance: METHYLPREDNISOLONE
     Indication: Immunosuppressant drug therapy
     Dosage: 2 MG, 1X/DAY

REACTIONS (2)
  - Drug interaction [Recovered/Resolved]
  - Toxicity to various agents [Recovered/Resolved]

NARRATIVE: CASE EVENT DATE: 20221201
